FAERS Safety Report 9680778 (Version 2)
Quarter: 2013Q4

REPORT INFORMATION
  Report Type: Report from Study
  Country: US (occurrence: US)
  Receive Date: 20131111
  Receipt Date: 20131111
  Transmission Date: 20140711
  Serious: No
  Sender: FDA-Public Use
  Company Number: PHEH2013US017850

PATIENT
  Sex: Female

DRUGS (1)
  1. TASIGNA [Suspect]
     Indication: CHRONIC MYELOID LEUKAEMIA
     Dosage: 300 MG, BID
     Route: 048
     Dates: start: 201308

REACTIONS (5)
  - Sinusitis [Recovering/Resolving]
  - Eyelid irritation [Unknown]
  - Rash pruritic [Unknown]
  - Stomatitis [Recovering/Resolving]
  - Rash [Recovering/Resolving]
